FAERS Safety Report 12392777 (Version 1)
Quarter: 2016Q2

REPORT INFORMATION
  Report Type: Spontaneous
  Country: US (occurrence: US)
  Receive Date: 20160523
  Receipt Date: 20160523
  Transmission Date: 20160815
  Serious: Yes (Hospitalization)
  Sender: FDA-Public Use
  Company Number: US-BEH-2016062828

PATIENT
  Age: 32 Year
  Sex: Female

DRUGS (1)
  1. STIMATE [Suspect]
     Active Substance: DESMOPRESSIN ACETATE
     Indication: HAEMOPHILIA
     Dosage: 1 SPRAY EACH NOSTRIL
     Route: 045
     Dates: start: 20150610

REACTIONS (3)
  - Headache [Unknown]
  - Unevaluable event [Unknown]
  - Suture insertion [Unknown]

NARRATIVE: CASE EVENT DATE: 201602
